FAERS Safety Report 12216437 (Version 1)
Quarter: 2016Q1

REPORT INFORMATION
  Report Type: Spontaneous
  Country: US (occurrence: None)
  Receive Date: 20160328
  Receipt Date: 20160328
  Transmission Date: 20160526
  Serious: No
  Sender: FDA-Public Use
  Company Number: None

PATIENT
  Age: 67 Year
  Sex: Male
  Weight: 61 kg

DRUGS (1)
  1. DIVALPROEX [Suspect]
     Active Substance: DIVALPROEX SODIUM
     Indication: SCHIZOPHRENIA
     Route: 048
     Dates: start: 20140522, end: 20151108

REACTIONS (4)
  - Transaminases increased [None]
  - Thrombocytopenia [None]
  - Anaemia macrocytic [None]
  - Tremor [None]

NARRATIVE: CASE EVENT DATE: 20151108
